FAERS Safety Report 24634120 (Version 1)
Quarter: 2024Q4

REPORT INFORMATION
  Report Type: Spontaneous
  Country: US (occurrence: US)
  Receive Date: 20241119
  Receipt Date: 20241119
  Transmission Date: 20250115
  Serious: Yes (Hospitalization, Other)
  Sender: NOVO NORDISK
  Company Number: US-NOVOPROD-1316526

PATIENT
  Age: 65 Year
  Sex: Female

DRUGS (1)
  1. NOVOLOG [Suspect]
     Active Substance: INSULIN ASPART
     Indication: Type 1 diabetes mellitus
     Dosage: USED FOR PUMP, FILLED TO THE LINE EVERY 3 DAYS
     Route: 058

REACTIONS (6)
  - Cerebrovascular accident [Recovered/Resolved]
  - Limb discomfort [Unknown]
  - Speech disorder [Not Recovered/Not Resolved]
  - Seizure [Recovered/Resolved]
  - Blood potassium increased [Recovered/Resolved]
  - Infection [Recovered/Resolved]

NARRATIVE: CASE EVENT DATE: 20230807
